FAERS Safety Report 8854127 (Version 2)
Quarter: 2012Q4

REPORT INFORMATION
  Report Type: 
  Country: US (occurrence: US)
  Receive Date: 20121022
  Receipt Date: 20121115
  Transmission Date: 20130627
  Serious: No
  Sender: FDA-Public Use
  Company Number: US-PFIZER INC-2012261934

PATIENT
  Sex: Female

DRUGS (1)
  1. VIAGRA [Suspect]
     Dosage: UNK
     Route: 050

REACTIONS (4)
  - Exposure via partner [Unknown]
  - Urticaria [Unknown]
  - Rash [Unknown]
  - Hypersensitivity [Unknown]
